FAERS Safety Report 5034696-0 (Version None)
Quarter: 2006Q2

REPORT INFORMATION
  Report Type: 
  Country: None (occurrence: None)
  Receive Date: 20060621
  Receipt Date: 20060609
  Transmission Date: 20061013
  Serious: Yes (Other)
  Sender: FDA-Public Use
  Company Number: 14170

PATIENT
  Age: 72 Year
  Sex: Male
  Weight: 77.2 kg

DRUGS (7)
  1. AMIODARONE HCL [Suspect]
     Dosage: 200 MG DAILY
     Dates: start: 20040710
  2. SIMVASTATIN [Suspect]
     Dosage: 80 MG DAILY
     Dates: start: 20040813
  3. METFORMIN [Concomitant]
  4. ENALAPRIL [Concomitant]
  5. GLIMEPIRIDE [Concomitant]
  6. HYDROCHLOROTHIAZIDE [Concomitant]
  7. ASPIRIN [Concomitant]

REACTIONS (4)
  - AZOTAEMIA [None]
  - DRUG INTERACTION [None]
  - HEPATOTOXICITY [None]
  - RHABDOMYOLYSIS [None]
